FAERS Safety Report 5723155-5 (Version None)
Quarter: 2008Q2

REPORT INFORMATION
  Report Type: 
  Country: None (occurrence: None)
  Receive Date: 20080428
  Receipt Date: 20080114
  Transmission Date: 20081010
  Serious: No
  Sender: FDA-Public Use
  Company Number: 232605J08USA

PATIENT
  Age: 46 Year
  Sex: Female
  Weight: 79.3795 kg

DRUGS (5)
  1. REBIF [Suspect]
     Indication: MULTIPLE SCLEROSIS
     Dosage: 0.5 NOT REPORTED,  1 IN 2 DAYS, NOT REPORTED
     Dates: start: 20060101
  2. LYRICA [Concomitant]
  3. KLONOPIN [Concomitant]
  4. CYMBALTA [Concomitant]
  5. VICODIN [Concomitant]

REACTIONS (8)
  - ABNORMAL SENSATION IN EYE [None]
  - CONDITION AGGRAVATED [None]
  - DRUG HYPERSENSITIVITY [None]
  - GASTROENTERITIS VIRAL [None]
  - INFLUENZA [None]
  - INJECTION SITE BRUISING [None]
  - MULTIPLE SCLEROSIS [None]
  - VISUAL ACUITY REDUCED [None]
